FAERS Safety Report 9293965 (Version 1)
Quarter: 2013Q1

REPORT INFORMATION
  Report Type: Spontaneous
  Country: US (occurrence: None)
  Receive Date: 20121217
  Receipt Date: 20121217
  Transmission Date: 20140127
  Serious: Yes (Hospitalization)
  Sender: FDA-Public Use
  Company Number: PHEH2012US009144

PATIENT
  Age: 78 Year
  Sex: Female

DRUGS (2)
  1. EXFORGE HCT [Suspect]
     Dosage: 320/10/25 MG,UNK?
  2. EXFORGE [Suspect]
     Dosage: 320/10MG, UNK

REACTIONS (2)
  - Oedema peripheral [None]
  - Abasia [None]
